FAERS Safety Report 11179999 (Version 1)
Quarter: 2015Q2

REPORT INFORMATION
  Report Type: Spontaneous
  Country: US (occurrence: US)
  Receive Date: 20150611
  Receipt Date: 20150611
  Transmission Date: 20150821
  Serious: No
  Sender: FDA-Public Use
  Company Number: US-TEVA-553820USA

PATIENT
  Age: 63 Year
  Sex: Female

DRUGS (4)
  1. DULOXETINE [Suspect]
     Active Substance: DULOXETINE
     Dosage: 5 MILLIGRAM DAILY;
  2. DULOXETINE [Suspect]
     Active Substance: DULOXETINE
     Dosage: 15 MILLIGRAM DAILY;
     Dates: end: 201501
  3. DULOXETINE [Suspect]
     Active Substance: DULOXETINE
     Dates: start: 201501
  4. DULOXETINE [Suspect]
     Active Substance: DULOXETINE
     Dosage: 60 MILLIGRAM DAILY;

REACTIONS (8)
  - Diplopia [Recovered/Resolved]
  - Nausea [Recovered/Resolved]
  - Balance disorder [Not Recovered/Not Resolved]
  - Tinnitus [Not Recovered/Not Resolved]
  - Headache [Recovered/Resolved]
  - Diarrhoea [Recovered/Resolved]
  - Drug effect increased [Unknown]
  - Dizziness [Recovered/Resolved]
